FAERS Safety Report 7007507-1 (Version None)
Quarter: 2010Q3

REPORT INFORMATION
  Report Type: 
  Country: None (occurrence: None)
  Receive Date: 20100922
  Receipt Date: 20100913
  Transmission Date: 20110219
  Serious: Yes (Other)
  Sender: FDA-Public Use
  Company Number: DE-ASTRAZENECA-2010SE43108

PATIENT
  Age: 41 Year
  Sex: Female
  Weight: 63 kg

DRUGS (1)
  1. LIDOCAINE [Suspect]
     Indication: GLOSSITIS
     Dosage: 20 MG / 1 ML, WITH UNKNOWN FREQUENCY.
     Route: 065
     Dates: start: 20100804, end: 20100804

REACTIONS (1)
  - EPILEPSY [None]
